FAERS Safety Report 9281521 (Version 1)
Quarter: 2013Q2

REPORT INFORMATION
  Report Type: Spontaneous
  Country: ES (occurrence: ES)
  Receive Date: 20130509
  Receipt Date: 20130509
  Transmission Date: 20140414
  Serious: Yes (Other)
  Sender: FDA-Public Use
  Company Number: ES-ROXANE LABORATORIES, INC.-2013-RO-00704RO

PATIENT
  Age: 20 Year
  Sex: Male

DRUGS (4)
  1. AZATHIOPRINE [Suspect]
     Indication: CROHN^S DISEASE
     Dosage: 150 MG
     Route: 048
     Dates: start: 2006
  2. BUDESONIDE [Suspect]
     Indication: CROHN^S DISEASE
     Dosage: 3 MG
     Route: 048
     Dates: start: 2006
  3. INFLIXIMAB [Suspect]
     Indication: CROHN^S DISEASE
     Dates: start: 2009
  4. VALPROIC ACID [Suspect]
     Indication: CONVULSION

REACTIONS (2)
  - Hodgkin^s disease mixed cellularity stage IV [Unknown]
  - Epstein-Barr virus infection [Unknown]
